FAERS Safety Report 7274728-2 (Version None)
Quarter: 2011Q1

REPORT INFORMATION
  Report Type: 
  Country: None (occurrence: None)
  Receive Date: 20110204
  Receipt Date: 20110124
  Transmission Date: 20110831
  Serious: Yes (Other)
  Sender: FDA-Public Use
  Company Number: US-ELI_LILLY_AND_COMPANY-US201005004617

PATIENT
  Sex: Female

DRUGS (2)
  1. FORTEO [Suspect]
     Indication: OSTEOPOROSIS
     Dosage: 20 UG, DAILY (1/D)
     Route: 058
     Dates: start: 20091201, end: 20100501
  2. FORTEO [Suspect]
     Dosage: 20 UG, DAILY (1/D)

REACTIONS (13)
  - BACK PAIN [None]
  - NECK PAIN [None]
  - FATIGUE [None]
  - SLEEP APNOEA SYNDROME [None]
  - ANXIETY [None]
  - DIZZINESS [None]
  - HEADACHE [None]
  - ASTHENIA [None]
  - MALAISE [None]
  - FIBROMYALGIA [None]
  - MENTAL IMPAIRMENT [None]
  - LOWER LIMB FRACTURE [None]
  - NAUSEA [None]
